FAERS Safety Report 11788897 (Version 1)
Quarter: 2015Q4

REPORT INFORMATION
  Report Type: Spontaneous
  Country: GB (occurrence: GB)
  Receive Date: 20151201
  Receipt Date: 20151201
  Transmission Date: 20160305
  Serious: Yes (Disabling)
  Sender: FDA-Public Use
  Company Number: GB-WATSON-2015-18068

PATIENT
  Age: 80 Year
  Sex: Female
  Weight: 80 kg

DRUGS (2)
  1. RAMIPRIL. [Concomitant]
     Active Substance: RAMIPRIL
     Indication: PRODUCT USED FOR UNKNOWN INDICATION
     Dosage: UNK
     Route: 065
  2. RALOXIFENE (UNKNOWN) [Suspect]
     Active Substance: RALOXIFENE
     Indication: OSTEOPOROSIS
     Dosage: 60 MG, DAILY
     Route: 048
     Dates: start: 20141203, end: 20150202

REACTIONS (1)
  - Acute kidney injury [Not Recovered/Not Resolved]

NARRATIVE: CASE EVENT DATE: 20150203
